FAERS Safety Report 5056015-6 (Version None)
Quarter: 2006Q3

REPORT INFORMATION
  Report Type: 
  Country: None (occurrence: None)
  Receive Date: 20060720
  Receipt Date: 20060713
  Transmission Date: 20061208
  Serious: Yes (Hospitalization, Other)
  Sender: FDA-Public Use
  Company Number: 2006UW14467

PATIENT
  Age: 76 Year
  Sex: Female

DRUGS (6)
  1. PULMICORT SUSPENSION [Suspect]
     Indication: COUGH
     Dosage: ONE DOSE
     Route: 055
     Dates: start: 20060703, end: 20060703
  2. PULMICORT SUSPENSION [Suspect]
     Indication: FATIGUE
     Dosage: ONE DOSE
     Route: 055
     Dates: start: 20060703, end: 20060703
  3. BEROTEC [Concomitant]
     Indication: COUGH
     Route: 055
     Dates: start: 20060613
  4. BEROTEC [Concomitant]
     Indication: FATIGUE
     Route: 055
     Dates: start: 20060613
  5. ATROVENT [Concomitant]
     Indication: COUGH
     Route: 055
     Dates: start: 20060613
  6. ATROVENT [Concomitant]
     Indication: FATIGUE
     Route: 055
     Dates: start: 20060613

REACTIONS (2)
  - RESPIRATORY ARREST [None]
  - TRACHEAL STENOSIS [None]
